FAERS Safety Report 11326659 (Version 1)
Quarter: 2015Q3

REPORT INFORMATION
  Report Type: Report from Study
  Country: DK (occurrence: DK)
  Receive Date: 20150731
  Receipt Date: 20150731
  Transmission Date: 20151125
  Serious: Yes (Death)
  Sender: FDA-Public Use
  Company Number: DK-ALKEM-001094

PATIENT
  Age: 38 Year
  Sex: Male
  Weight: 91 kg

DRUGS (7)
  1. 7-AMINOCLONAZEPAM [Concomitant]
     Active Substance: CLONAZEPAM
  2. AMFETAMINE [Concomitant]
     Active Substance: AMPHETAMINE
  3. CLOBAZAM [Concomitant]
     Active Substance: CLOBAZAM
  4. ZOPICLONE [Concomitant]
     Active Substance: ZOPICLONE
  5. OXYMORPHONE/OXYMORPHONE HYDROCHLORIDE [Concomitant]
  6. QUETIAPINE/QUETIAPINE FUMARATE [Suspect]
     Active Substance: QUETIAPINE FUMARATE
     Indication: PRODUCT USED FOR UNKNOWN INDICATION
  7. OXYCODONE/OXYCODONE HYDROCHLORIDE/OXYCODONE PECTINATE/OXYCODONE TEREPHTHALATE [Suspect]
     Active Substance: OXYCODONE
     Indication: PRODUCT USED FOR UNKNOWN INDICATION

REACTIONS (1)
  - Toxicity to various agents [Fatal]
